FAERS Safety Report 21177624 (Version 2)
Quarter: 2022Q3

REPORT INFORMATION
  Report Type: Spontaneous
  Country: US (occurrence: US)
  Receive Date: 20220805
  Receipt Date: 20220820
  Transmission Date: 20221027
  Serious: Yes (Hospitalization, Other)
  Sender: FDA-Public Use
  Company Number: US-TEVA-2022-US-2060027

PATIENT
  Age: 60 Year
  Sex: Male

DRUGS (12)
  1. CLONAZEPAM [Suspect]
     Active Substance: CLONAZEPAM
     Indication: Partial seizures
     Dosage: 1 MILLIGRAM DAILY; CLONAZEPAM 1 MG/NIGHT
     Route: 065
  2. LAMOTRIGINE [Suspect]
     Active Substance: LAMOTRIGINE
     Indication: Partial seizures
     Dosage: 300 MILLIGRAM DAILY;
     Route: 065
  3. LEVETIRACETAM [Suspect]
     Active Substance: LEVETIRACETAM
     Indication: Partial seizures
     Dosage: 3000 MILLIGRAM DAILY;
     Route: 065
  4. TIAGABINE [Interacting]
     Active Substance: TIAGABINE
     Indication: Partial seizures
     Route: 065
  5. TIAGABINE [Interacting]
     Active Substance: TIAGABINE
     Dosage: 48 MILLIGRAM DAILY; TITRATED TO 48 MG/DAY
     Route: 065
  6. TIAGABINE [Interacting]
     Active Substance: TIAGABINE
     Dosage: TIAGABINE WAS DECREASED BY ONLY HALF TABLET
     Route: 065
  7. VALPROIC ACID [Suspect]
     Active Substance: VALPROIC ACID
     Indication: Partial seizures
     Dosage: 2000 MILLIGRAM DAILY;
     Route: 065
  8. LACOSAMIDE [Suspect]
     Active Substance: LACOSAMIDE
     Indication: Partial seizures
     Dosage: 600 MILLIGRAM DAILY;
     Route: 065
  9. PERAMPANEL [Interacting]
     Active Substance: PERAMPANEL
     Indication: Partial seizures
     Dosage: 16 MILLIGRAM DAILY; PERAMPANEL 16MG PER NIGHT
     Route: 065
  10. CANNABIDIOL [Interacting]
     Active Substance: CANNABIDIOL
     Indication: Partial seizures
     Dosage: 150 MILLIGRAM DAILY;
     Route: 065
  11. EPIDIOLEX [Interacting]
     Active Substance: CANNABIDIOL
     Indication: Partial seizures
     Route: 065
  12. EPIDIOLEX [Interacting]
     Active Substance: CANNABIDIOL
     Dosage: 20 MG/KG DAILY; TITRATED TO 20 MG/KG/DAY
     Route: 065

REACTIONS (4)
  - Drug ineffective [Unknown]
  - Status epilepticus [Recovering/Resolving]
  - Drug interaction [Recovering/Resolving]
  - Off label use [Unknown]
